FAERS Safety Report 11916032 (Version 1)
Quarter: 2016Q1

REPORT INFORMATION
  Report Type: Spontaneous
  Country: US (occurrence: US)
  Receive Date: 20160114
  Receipt Date: 20160114
  Transmission Date: 20160526
  Serious: No
  Sender: FDA-Public Use
  Company Number: US-TORRENT-00001059

PATIENT
  Sex: Female
  Weight: 54 kg

DRUGS (1)
  1. PANTOPRAZOLE SODIUM DELAYED RELEASE [Suspect]
     Active Substance: PANTOPRAZOLE SODIUM
     Indication: GASTROOESOPHAGEAL REFLUX DISEASE
     Dosage: EITHER 20MG TWICE A DAY OR 40MG ONCE A DAY DEPENDING ON WHAT WAS AVAILABLE

REACTIONS (3)
  - Product substitution issue [Unknown]
  - Dysphonia [Unknown]
  - Drug ineffective [Unknown]
